FAERS Safety Report 21095877 (Version 1)
Quarter: 2022Q3

REPORT INFORMATION
  Report Type: Spontaneous
  Country: US (occurrence: US)
  Receive Date: 20220718
  Receipt Date: 20220718
  Transmission Date: 20221027
  Serious: Yes (Other)
  Sender: FDA-Public Use
  Company Number: US-GLENMARK PHARMACEUTICALS-2022GMK072796

PATIENT

DRUGS (3)
  1. ZONISAMIDE [Suspect]
     Active Substance: ZONISAMIDE
     Indication: Seizure
     Dosage: 1 DOSAGE FORM, HS
     Route: 048
     Dates: start: 202202
  2. ZONISAMIDE [Suspect]
     Active Substance: ZONISAMIDE
     Dosage: 1 DOSAGE FORM, HS (INEFFECTIVE ONE)
     Route: 048
     Dates: start: 202204
  3. ZONISAMIDE [Suspect]
     Active Substance: ZONISAMIDE
     Dosage: 1 DOSAGE FORM, HS (EFFECTIVE ONE)
     Route: 048
     Dates: start: 202205

REACTIONS (4)
  - Drug ineffective [Unknown]
  - Tongue biting [Recovered/Resolved]
  - Recalled product administered [Unknown]
  - Product quality issue [Unknown]

NARRATIVE: CASE EVENT DATE: 20220401
